FAERS Safety Report 7579499-8 (Version None)
Quarter: 2011Q2

REPORT INFORMATION
  Report Type: 
  Country: None (occurrence: None)
  Receive Date: 20110629
  Receipt Date: 20091212
  Transmission Date: 20111010
  Serious: Yes (Other)
  Sender: FDA-Public Use
  Company Number: US-BAYER-200942454NA

PATIENT
  Age: 59 Year
  Sex: Male
  Weight: 72 kg

DRUGS (21)
  1. AMIODARONE HCL [Concomitant]
     Dosage: 60 MG
     Route: 042
     Dates: start: 20051210
  2. MILRINONE [Concomitant]
     Dosage: 0.4 MG
     Route: 042
     Dates: start: 20051210
  3. CARDIOPLEGIA [Concomitant]
     Dosage: UNK
     Dates: start: 20050101, end: 20051210
  4. MANNITOL [Concomitant]
     Dosage: 12.5 MG
     Route: 042
     Dates: start: 20051210
  5. ANCEF [Concomitant]
     Dosage: 1 GM
     Route: 042
     Dates: start: 20051210, end: 20051210
  6. VISIPAQUE [Concomitant]
     Dosage: 50 ML
     Route: 042
     Dates: start: 20051206
  7. PLATELETS [Concomitant]
     Dosage: 1 UNIT
     Route: 042
     Dates: start: 20021210
  8. SODIUM NITROPRUSSIDE [Concomitant]
     Dosage: 50 MG
     Route: 042
     Dates: start: 20051210
  9. TRASYLOL [Suspect]
     Indication: CORONARY ARTERY BYPASS
     Dosage: 1 ML TEST DOSE
     Route: 042
     Dates: start: 20051210, end: 20051210
  10. TRASYLOL [Suspect]
     Dosage: 50 ML/HR
     Route: 042
     Dates: start: 20051210, end: 20051210
  11. IBUPROFEN [Concomitant]
  12. HEPARIN [Concomitant]
     Dosage: 400 MG PRIME
     Route: 050
     Dates: start: 20051210
  13. ALBUMIN (HUMAN) [Concomitant]
     Dosage: 100 CC PRIME
     Route: 050
     Dates: start: 20051210
  14. TRASYLOL [Suspect]
     Dosage: 200 ML LOADING DOSE
     Route: 042
     Dates: start: 20051210, end: 20051210
  15. LASIX [Concomitant]
     Dosage: 100MG
     Route: 042
     Dates: start: 20051210
  16. DEXAMETHASONE [Concomitant]
     Dosage: 0.5 ML
     Route: 042
     Dates: start: 20051210
  17. PROTAMINE SULFATE [Concomitant]
     Dosage: 290 MG
     Route: 042
     Dates: start: 20051210
  18. DOPAMINE HCL [Concomitant]
     Dosage: 5 MG
     Route: 042
     Dates: start: 20051210
  19. PLASMA [Concomitant]
     Dosage: 1 UNIT
     Route: 042
     Dates: start: 20051210
  20. ALTACE [Concomitant]
     Dosage: 5 MG
     Route: 048
     Dates: start: 20051123
  21. LIDOCAINE [Concomitant]
     Dosage: 100 MG
     Route: 042
     Dates: start: 20051210

REACTIONS (10)
  - ANXIETY [None]
  - PAIN [None]
  - INJURY [None]
  - EMOTIONAL DISTRESS [None]
  - STRESS [None]
  - FEAR [None]
  - RENAL FAILURE [None]
  - RENAL IMPAIRMENT [None]
  - RENAL INJURY [None]
  - UNEVALUABLE EVENT [None]
